FAERS Safety Report 12704273 (Version 1)
Quarter: 2016Q3

REPORT INFORMATION
  Report Type: Spontaneous
  Country: IL (occurrence: IL)
  Receive Date: 20160831
  Receipt Date: 20160831
  Transmission Date: 20161109
  Serious: Yes (Hospitalization, Other)
  Sender: FDA-Public Use
  Company Number: IL-TEVA-688143ISR

PATIENT
  Age: 77 Year
  Sex: Male
  Weight: 72 kg

DRUGS (7)
  1. RAD001 [Concomitant]
     Active Substance: EVEROLIMUS
     Dosage: 5 MILLIGRAM DAILY;
     Route: 048
     Dates: start: 20120408, end: 20120510
  2. RAD001 [Concomitant]
     Active Substance: EVEROLIMUS
     Dosage: 5 MILLIGRAM DAILY;
     Route: 048
     Dates: end: 20130305
  3. ASPIRIN. [Concomitant]
     Active Substance: ASPIRIN
     Route: 065
  4. NORMITEN [Concomitant]
     Active Substance: ATENOLOL
     Route: 065
  5. FUSID [Suspect]
     Active Substance: FUROSEMIDE
     Indication: CARDIAC FAILURE CONGESTIVE
     Dosage: 40 MILLIGRAM DAILY;
     Route: 065
     Dates: end: 20130330
  6. PLAVIX [Concomitant]
     Active Substance: CLOPIDOGREL BISULFATE
  7. RAD001 [Concomitant]
     Active Substance: EVEROLIMUS
     Indication: DIFFUSE LARGE B-CELL LYMPHOMA
     Dosage: 5 MILLIGRAM DAILY;
     Route: 048
     Dates: start: 20120228, end: 20120407

REACTIONS (2)
  - Syncope [Recovered/Resolved]
  - Cardiac failure congestive [Unknown]

NARRATIVE: CASE EVENT DATE: 20130331
